FAERS Safety Report 24336449 (Version 1)
Quarter: 2024Q3

REPORT INFORMATION
  Report Type: Spontaneous
  Country: HR (occurrence: HR)
  Receive Date: 20240919
  Receipt Date: 20240919
  Transmission Date: 20241017
  Serious: No
  Sender: ROCHE
  Company Number: None

PATIENT
  Age: 15 Month
  Sex: Male
  Weight: 10.0 kg

DRUGS (1)
  1. TAMIFLU [Suspect]
     Active Substance: OSELTAMIVIR PHOSPHATE
     Indication: Product used for unknown indication
     Route: 065
     Dates: start: 20240121, end: 20240121

REACTIONS (2)
  - No adverse event [Unknown]
  - Wrong dose [Unknown]

NARRATIVE: CASE EVENT DATE: 20240121
